FAERS Safety Report 19492677 (Version 1)
Quarter: 2021Q3

REPORT INFORMATION
  Report Type: Spontaneous
  Country: CN (occurrence: CN)
  Receive Date: 20210705
  Receipt Date: 20210705
  Transmission Date: 20211014
  Serious: Yes (Other)
  Sender: FDA-Public Use
  Company Number: CN-ALLERGAN-2124307US

PATIENT
  Sex: Female
  Weight: 53 kg

DRUGS (1)
  1. LINACLOTIDE ? BP [Suspect]
     Active Substance: LINACLOTIDE
     Indication: CONSTIPATION
     Dosage: 1 DF, QD
     Route: 048
     Dates: start: 20210604, end: 20210616

REACTIONS (3)
  - Blood sodium decreased [Recovering/Resolving]
  - Blood chloride decreased [Recovering/Resolving]
  - Blood potassium decreased [Recovering/Resolving]

NARRATIVE: CASE EVENT DATE: 20210605
